FAERS Safety Report 9916225 (Version 1)
Quarter: 2014Q1

REPORT INFORMATION
  Report Type: Spontaneous
  Country: IT (occurrence: IT)
  Receive Date: 20140221
  Receipt Date: 20140221
  Transmission Date: 20141002
  Serious: Yes (Other)
  Sender: FDA-Public Use
  Company Number: PHHY2014IT017753

PATIENT
  Age: 29 Year
  Sex: Female

DRUGS (7)
  1. METFORMIN [Suspect]
     Indication: GLUCOSE TOLERANCE IMPAIRED
     Dosage: 500 MG PER 12 H
  2. METFORMIN [Suspect]
     Indication: OFF LABEL USE
  3. MINOCYCLINE [Suspect]
     Indication: ROSACEA
  4. METRONIDAZOLE [Suspect]
     Indication: ROSACEA
  5. CETIRIZINE [Suspect]
     Indication: SYSTEMIC LUPUS ERYTHEMATOSUS
  6. LINCOMYCIN [Suspect]
     Indication: SYSTEMIC LUPUS ERYTHEMATOSUS
  7. LEVOTHYROXINE [Concomitant]
     Indication: HYPOTHYROIDISM
     Dosage: 50 UG PER DAY

REACTIONS (10)
  - Systemic lupus erythematosus [Unknown]
  - Rash [Unknown]
  - Burning sensation [Unknown]
  - Papule [Unknown]
  - Rosacea [Unknown]
  - Pruritus [Recovering/Resolving]
  - Erythema [Unknown]
  - Telangiectasia [Unknown]
  - Myxoedema [Unknown]
  - Drug ineffective [Unknown]
